FAERS Safety Report 5035486-5 (Version None)
Quarter: 2006Q2

REPORT INFORMATION
  Report Type: 
  Country: None (occurrence: None)
  Receive Date: 20060525
  Receipt Date: 20060227
  Transmission Date: 20061013
  Serious: No
  Sender: FDA-Public Use
  Company Number: S06-USA-00679-01

PATIENT
  Age: 47 Year
  Sex: Female

DRUGS (4)
  1. CAMPRAL [Suspect]
     Indication: ABSTAINS FROM ALCOHOL
     Dates: start: 20050301, end: 20050601
  2. LITHIUM CARBONATE [Concomitant]
  3. LEXAPRO [Concomitant]
  4. TOPAMAX [Concomitant]

REACTIONS (3)
  - ARTHRALGIA [None]
  - CANDIDIASIS [None]
  - DRY MOUTH [None]
